FAERS Safety Report 8790466 (Version 1)
Quarter: 2012Q4

REPORT INFORMATION
  Report Type: Spontaneous
  Country: DK (occurrence: None)
  Receive Date: 20120906
  Receipt Date: 20120906
  Transmission Date: 20130627
  Serious: Yes (Other)
  Sender: FDA-Public Use
  Company Number: 2012MA010775

PATIENT
  Age: 46 Year
  Sex: Female

DRUGS (4)
  1. DIAZEPAM [Suspect]
  2. CONCERTA [Suspect]
  3. PROPAVAN [Suspect]
  4. STILNOCT [Suspect]

REACTIONS (19)
  - Depressed mood [None]
  - Anxiety [None]
  - Vision blurred [None]
  - Confusional state [None]
  - Dry mouth [None]
  - Fall [None]
  - Fear [None]
  - Headache [None]
  - Amnesia [None]
  - Menstrual disorder [None]
  - Nightmare [None]
  - Post-traumatic stress disorder [None]
  - Pruritus [None]
  - Rash [None]
  - Social phobia [None]
  - Weight decreased [None]
  - Pain [None]
  - Social problem [None]
  - Suicidal ideation [None]
